FAERS Safety Report 5323048-1 (Version None)
Quarter: 2007Q2

REPORT INFORMATION
  Report Type: 
  Country: None (occurrence: None)
  Receive Date: 20070220
  Receipt Date: 20070111
  Transmission Date: 20071010
  Serious: No
  Sender: FDA-Public Use
  Company Number: WAES0701USA01690

PATIENT
  Age: 66 Year
  Sex: Female

DRUGS (5)
  1. JANUVIA [Suspect]
     Indication: DIABETES MELLITUS
     Dosage: 100 MG DAILY PO
     Route: 048
     Dates: start: 20061201, end: 20061201
  2. ALTACE [Concomitant]
  3. NEXIUM [Concomitant]
  4. DIURETIC [Concomitant]
  5. INSULIN [Concomitant]

REACTIONS (2)
  - PHARYNGOLARYNGEAL PAIN [None]
  - SLEEP DISORDER [None]
